FAERS Safety Report 16214083 (Version 1)
Quarter: 2019Q2

REPORT INFORMATION
  Report Type: Spontaneous
  Country: US (occurrence: US)
  Receive Date: 20190418
  Receipt Date: 20190418
  Transmission Date: 20190711
  Serious: Yes (Other)
  Sender: FDA-Public Use
  Company Number: US-VIIV HEALTHCARE LIMITED-US2019GSK067664

PATIENT
  Age: 51 Year
  Sex: Male

DRUGS (12)
  1. ATAZANAVIR + RITONAVIR [Concomitant]
     Active Substance: ATAZANAVIR\RITONAVIR
     Indication: HIV INFECTION
     Dosage: UNK
  2. TRIMETHOPRIM + SULFAMETHOXAZOL [Suspect]
     Active Substance: SULFAMERAZINE SODIUM\TRIMETHOPRIM
     Indication: OPPORTUNISTIC INFECTION PROPHYLAXIS
  3. ABACAVIR. [Concomitant]
     Active Substance: ABACAVIR
     Indication: HIV INFECTION
     Dosage: UNK
  4. TERAZOSIN [Concomitant]
     Active Substance: TERAZOSIN\TERAZOSIN HYDROCHLORIDE
     Indication: BENIGN PROSTATIC HYPERPLASIA
     Dosage: UNK
  5. LAMIVUDINE. [Interacting]
     Active Substance: LAMIVUDINE
     Indication: HIV INFECTION
     Dosage: UNK
  6. GEMFIBROZIL. [Concomitant]
     Active Substance: GEMFIBROZIL
     Indication: HYPERTRIGLYCERIDAEMIA
     Dosage: UNK
  7. TACROLIMUS. [Interacting]
     Active Substance: TACROLIMUS
     Indication: IMMUNOSUPPRESSANT DRUG THERAPY
  8. EMTRICITABINE + TENOFOVIR ALAFENAMIDE [Interacting]
     Active Substance: EMTRICITABINE\TENOFOVIR ALAFENAMIDE FUMARATE
     Indication: HIV INFECTION
     Dosage: UNK
  9. MYCOPHENOLATE [Concomitant]
     Active Substance: MYCOPHENOLIC ACID
     Indication: IMMUNOSUPPRESSANT DRUG THERAPY
     Dosage: UNK
  10. DOLUTEGRAVIR [Suspect]
     Active Substance: DOLUTEGRAVIR
     Indication: HIV INFECTION
     Dosage: UNK
  11. PREDNISONE. [Concomitant]
     Active Substance: PREDNISONE
     Indication: IMMUNOSUPPRESSANT DRUG THERAPY
     Dosage: UNK
  12. METOPROLOL. [Concomitant]
     Active Substance: METOPROLOL
     Indication: HYPERTENSION
     Dosage: UNK

REACTIONS (8)
  - Tubulointerstitial nephritis [Unknown]
  - Drug interaction [Unknown]
  - Kidney fibrosis [Unknown]
  - Blood creatinine increased [Unknown]
  - Nephritis [Unknown]
  - Drug level below therapeutic [Unknown]
  - Renal tubular atrophy [Unknown]
  - Renal injury [Unknown]
